FAERS Safety Report 7323252-7 (Version None)
Quarter: 2011Q1

REPORT INFORMATION
  Report Type: 
  Country: None (occurrence: None)
  Receive Date: 20110301
  Receipt Date: 20110214
  Transmission Date: 20110831
  Serious: Yes (Hospitalization, Other)
  Sender: FDA-Public Use
  Company Number: IT-SANOFI-AVENTIS-2011SA005642

PATIENT
  Age: 65 Year
  Sex: Male

DRUGS (3)
  1. MULTAQ [Suspect]
     Indication: ATRIAL FIBRILLATION
     Route: 048
     Dates: start: 20101215, end: 20110113
  2. SIMVASTATIN [Concomitant]
     Route: 048
  3. AMIODARONE [Concomitant]

REACTIONS (6)
  - ASTHENIA [None]
  - NAUSEA [None]
  - JAUNDICE [None]
  - TRANSAMINASES INCREASED [None]
  - HEPATIC NECROSIS [None]
  - GASTROINTESTINAL DISORDER [None]
